FAERS Safety Report 5128416-9 (Version None)
Quarter: 2006Q4

REPORT INFORMATION
  Report Type: 
  Country: None (occurrence: None)
  Receive Date: 20061010
  Receipt Date: 20060926
  Transmission Date: 20070319
  Serious: No
  Sender: FDA-Public Use
  Company Number: WSDF_00576

PATIENT
  Age: 54 Year
  Sex: Male
  Weight: 105 kg

DRUGS (4)
  1. WINRHO SDF [Suspect]
     Indication: IDIOPATHIC THROMBOCYTOPENIC PURPURA
     Dosage: 75 UG/KG ONCE IV
     Route: 042
     Dates: start: 20060726, end: 20060726
  2. WINRHO SDF [Suspect]
     Indication: IDIOPATHIC THROMBOCYTOPENIC PURPURA
     Dosage: 50 UG/KG ONCE IV
     Route: 042
     Dates: start: 20060728, end: 20060728
  3. DECADRON [Concomitant]
  4. TYLENOL [Concomitant]

REACTIONS (9)
  - ANAEMIA [None]
  - BLOOD BILIRUBIN INCREASED [None]
  - BLOOD BILIRUBIN UNCONJUGATED INCREASED [None]
  - BLOOD LACTATE DEHYDROGENASE INCREASED [None]
  - EPISTAXIS [None]
  - HAEMOLYSIS [None]
  - HAPTOGLOBIN DECREASED [None]
  - LIVER FUNCTION TEST ABNORMAL [None]
  - THROMBOCYTOPENIA [None]
